FAERS Safety Report 14655974 (Version 2)
Quarter: 2018Q1

REPORT INFORMATION
  Report Type: Spontaneous
  Country: JP (occurrence: JP)
  Receive Date: 20180319
  Receipt Date: 20180330
  Transmission Date: 20180509
  Serious: No
  Sender: FDA-Public Use
  Company Number: JP-009507513-1803JPN001438J

PATIENT
  Age: 88 Year
  Sex: Female

DRUGS (1)
  1. BELSOMRA [Suspect]
     Active Substance: SUVOREXANT
     Indication: INSOMNIA
     Dosage: 15 MG, QD
     Route: 048
     Dates: start: 20180226, end: 20180308

REACTIONS (1)
  - Strangury [Recovered/Resolved]

NARRATIVE: CASE EVENT DATE: 201802
